FAERS Safety Report 9139854 (Version 1)
Quarter: 2013Q1

REPORT INFORMATION
  Report Type: Spontaneous
  Country: US (occurrence: US)
  Receive Date: 20130305
  Receipt Date: 20130305
  Transmission Date: 20140127
  Serious: Yes (Other)
  Sender: FDA-Public Use
  Company Number: US-SANOFI-AVENTIS-2013SA020623

PATIENT
  Age: 62 Year
  Sex: Male

DRUGS (3)
  1. LANTUS SOLOSTAR [Suspect]
     Indication: TYPE 2 DIABETES MELLITUS
  2. SOLOSTAR [Suspect]
     Indication: TYPE 2 DIABETES MELLITUS
  3. LANTUS [Suspect]
     Indication: TYPE 2 DIABETES MELLITUS
     Dosage: DOSE:92 UNIT(S)
     Route: 051
     Dates: start: 2010

REACTIONS (5)
  - Fall [Unknown]
  - Thrombosis [Unknown]
  - Blood glucose increased [Not Recovered/Not Resolved]
  - Expired drug administered [Unknown]
  - Incorrect product storage [Unknown]
